FAERS Safety Report 9877028 (Version 1)
Quarter: 2014Q1

REPORT INFORMATION
  Report Type: Spontaneous
  Country: US (occurrence: US)
  Receive Date: 20140206
  Receipt Date: 20140206
  Transmission Date: 20141002
  Serious: No
  Sender: FDA-Public Use
  Company Number: US-PFIZER INC-2014031104

PATIENT
  Age: 48 Year
  Sex: Male
  Weight: 122.45 kg

DRUGS (3)
  1. VIAGRA [Suspect]
     Dosage: 50 MG, AS NEEDED
     Route: 048
     Dates: start: 201401
  2. DILTIAZEM [Concomitant]
     Dosage: 30 MG, UNK
  3. ADVIL [Concomitant]
     Dosage: 250 MG, UNK

REACTIONS (1)
  - Drug ineffective [Unknown]
